FAERS Safety Report 8578345-3 (Version None)
Quarter: 2012Q3

REPORT INFORMATION
  Report Type: 
  Country: None (occurrence: None)
  Receive Date: 20120808
  Receipt Date: 20120730
  Transmission Date: 20120928
  Serious: Yes (Other)
  Sender: FDA-Public Use
  Company Number: GB-BAYER-2012-077042

PATIENT
  Age: 79 Year
  Sex: Male

DRUGS (3)
  1. NEXAVAR [Suspect]
     Dosage: UNK UNK, BID
     Route: 048
     Dates: start: 20100930, end: 20120202
  2. RAMIPRIL [Concomitant]
     Dosage: 2.5 MG, UNK
     Route: 048
     Dates: start: 20120306
  3. SORAFENIB [Suspect]
     Dosage: 400 MG, BID
     Route: 048
     Dates: start: 20120203

REACTIONS (1)
  - RENAL ISCHAEMIA [None]
